FAERS Safety Report 12646582 (Version 2)
Quarter: 2016Q4

REPORT INFORMATION
  Report Type: Spontaneous
  Country: US (occurrence: US)
  Receive Date: 20160812
  Receipt Date: 20161006
  Transmission Date: 20170207
  Serious: No
  Sender: FDA-Public Use
  Company Number: US-BEH-2016072115

PATIENT
  Sex: Female
  Weight: 58.96 kg

DRUGS (27)
  1. EPIPEN [Concomitant]
     Active Substance: EPINEPHRINE
  2. PRISTIQ EXTENDED-RELEASE [Concomitant]
     Active Substance: DESVENLAFAXINE SUCCINATE
  3. PREDNISONE. [Concomitant]
     Active Substance: PREDNISONE
  4. OXYCODONE [Concomitant]
     Active Substance: OXYCODONE
  5. HIZENTRA [Suspect]
     Active Substance: HUMAN IMMUNOGLOBULIN G
     Dosage: UNK
     Route: 058
  6. LEVAQUIN [Concomitant]
     Active Substance: LEVOFLOXACIN
  7. LISINOPRIL. [Concomitant]
     Active Substance: LISINOPRIL
  8. NASONEX [Concomitant]
     Active Substance: MOMETASONE FUROATE
  9. POTASSIUM [Concomitant]
     Active Substance: POTASSIUM
  10. TIAZAC [Concomitant]
     Active Substance: DILTIAZEM HYDROCHLORIDE
  11. METFORMIN [Concomitant]
     Active Substance: METFORMIN HYDROCHLORIDE
  12. CLARITIN [Concomitant]
     Active Substance: LORATADINE
  13. VITAMIN D [Concomitant]
     Active Substance: CHOLECALCIFEROL
  14. BACTRIM [Concomitant]
     Active Substance: SULFAMETHOXAZOLE\TRIMETHOPRIM
  15. NYSTATIN. [Concomitant]
     Active Substance: NYSTATIN
  16. HIZENTRA [Suspect]
     Active Substance: HUMAN IMMUNOGLOBULIN G
     Indication: HYPOGAMMAGLOBULINAEMIA
     Route: 058
  17. LIDOCAINE/PRILOCAINE [Concomitant]
     Active Substance: LIDOCAINE\PRILOCAINE
  18. ALBUTEROL                          /00139501/ [Concomitant]
     Active Substance: ALBUTEROL
  19. THEO-DUR [Concomitant]
     Active Substance: THEOPHYLLINE ANHYDROUS
  20. TRICOR                             /00090101/ [Concomitant]
     Active Substance: ADENOSINE
  21. HIZENTRA [Suspect]
     Active Substance: HUMAN IMMUNOGLOBULIN G
     Dosage: 10 G, QW
     Route: 058
     Dates: start: 20110421
  22. OXYGEN. [Concomitant]
     Active Substance: OXYGEN
  23. LIDODERM [Concomitant]
     Active Substance: LIDOCAINE
  24. LASIX [Concomitant]
     Active Substance: FUROSEMIDE
  25. MS CONTIN [Concomitant]
     Active Substance: MORPHINE SULFATE
  26. DUONEB [Concomitant]
     Active Substance: ALBUTEROL SULFATE\IPRATROPIUM BROMIDE
  27. COMPAZINE                          /00013302/ [Concomitant]
     Active Substance: PROCHLORPERAZINE EDISYLATE

REACTIONS (3)
  - Infusion site mass [Unknown]
  - Infusion site erythema [Unknown]
  - Infusion site warmth [Unknown]
